FAERS Safety Report 6255113-9 (Version None)
Quarter: 2009Q3

REPORT INFORMATION
  Report Type: 
  Country: None (occurrence: None)
  Receive Date: 20090702
  Receipt Date: 20090624
  Transmission Date: 20100115
  Serious: Yes (Hospitalization, Other)
  Sender: FDA-Public Use
  Company Number: JP-ASTRAZENECA-2009AP02146

PATIENT
  Age: 82 Year
  Sex: Female

DRUGS (13)
  1. CRESTOR [Suspect]
     Indication: HYPERLIPIDAEMIA
     Route: 048
     Dates: start: 20071114, end: 20080701
  2. CRESTOR [Suspect]
     Route: 048
     Dates: start: 20090121
  3. EVISTA [Suspect]
     Indication: OSTEOPOROSIS
     Route: 048
     Dates: start: 20081210
  4. ALLELOCK [Suspect]
     Indication: RHINITIS ALLERGIC
     Route: 048
     Dates: start: 20090121
  5. BONALON [Concomitant]
     Indication: OSTEOPOROSIS
     Route: 048
     Dates: start: 20060708, end: 20080720
  6. NORVASC [Concomitant]
     Indication: HYPERTENSION
     Route: 048
     Dates: start: 20060708, end: 20080731
  7. BLOPRESS [Concomitant]
     Indication: HYPERTENSION
     Route: 048
     Dates: start: 20060708, end: 20080731
  8. CERCINE [Concomitant]
     Indication: INSOMNIA
     Route: 048
     Dates: start: 20060708, end: 20080731
  9. PICLONADINE [Concomitant]
     Indication: CEREBRAL INFARCTION
     Route: 048
     Dates: start: 20060708, end: 20080731
  10. TEBINACEIL [Concomitant]
     Indication: TINEA INFECTION
     Dosage: ONCE DAILY
     Route: 061
     Dates: start: 20060708
  11. ONEALFA [Concomitant]
     Indication: OSTEOPOROSIS
     Route: 048
     Dates: start: 20060708
  12. ASTOS-CA [Concomitant]
     Indication: OSTEOPOROSIS
     Route: 048
     Dates: start: 20060708
  13. ZYLORIC [Concomitant]
     Indication: GOUT
     Route: 048
     Dates: start: 20090318

REACTIONS (2)
  - HYPOKALAEMIA [None]
  - PYELONEPHRITIS [None]
